FAERS Safety Report 26167555 (Version 1)
Quarter: 2025Q4

REPORT INFORMATION
  Report Type: Spontaneous
  Country: US (occurrence: US)
  Receive Date: 20251217
  Receipt Date: 20251217
  Transmission Date: 20260117
  Serious: Yes (Death, Other)
  Sender: IPSEN BIOPHARMACEUTICALS, INC.
  Company Number: US-IPSEN Group, Research and Development-2025-30858

PATIENT
  Age: 4 Year
  Sex: Female

DRUGS (6)
  1. IRINOTECAN HYDROCHLORIDE [Suspect]
     Active Substance: IRINOTECAN HYDROCHLORIDE
     Indication: Pleuropulmonary blastoma
  2. IRINOTECAN HYDROCHLORIDE [Suspect]
     Active Substance: IRINOTECAN HYDROCHLORIDE
     Indication: Off label use
  3. VINCRISTINE [Suspect]
     Active Substance: VINCRISTINE
     Indication: Pleuropulmonary blastoma
  4. TEMOZOLOMIDE [Suspect]
     Active Substance: TEMOZOLOMIDE
     Indication: Pleuropulmonary blastoma
  5. TRAMETINIB [Suspect]
     Active Substance: TRAMETINIB
     Indication: Pleuropulmonary blastoma
  6. TRAMETINIB [Suspect]
     Active Substance: TRAMETINIB
     Indication: H-ras gene mutation

REACTIONS (4)
  - Haemorrhage intracranial [Fatal]
  - Malignant neoplasm progression [Fatal]
  - Metastases to central nervous system [Unknown]
  - Off label use [Unknown]
